FAERS Safety Report 23237763 (Version 2)
Quarter: 2024Q1

REPORT INFORMATION
  Report Type: Spontaneous
  Country: CA (occurrence: CA)
  Receive Date: 20231128
  Receipt Date: 20240328
  Transmission Date: 20240409
  Serious: Yes (Hospitalization, Other)
  Sender: FDA-Public Use
  Company Number: CA-SANDOZ-SDZ2023CA058874

PATIENT
  Age: 38 Year
  Sex: Female

DRUGS (16)
  1. CARBOPLATIN [Suspect]
     Active Substance: CARBOPLATIN
     Indication: Non-small cell lung cancer stage IV
     Dosage: UNK
     Route: 042
  2. CARBOPLATIN [Suspect]
     Active Substance: CARBOPLATIN
     Indication: Metastasis
  3. DEXAMETHASONE [Suspect]
     Active Substance: DEXAMETHASONE
     Indication: Peritumoural oedema
     Dosage: 10 MG, Q8H
     Route: 048
  4. DEXAMETHASONE [Suspect]
     Active Substance: DEXAMETHASONE
     Dosage: 4 MG, BID
     Route: 048
  5. DEXAMETHASONE [Suspect]
     Active Substance: DEXAMETHASONE
     Dosage: 4 MG
     Route: 048
  6. DEXTROMETHORPHAN [Suspect]
     Active Substance: DEXTROMETHORPHAN
     Indication: Antitussive therapy
     Dosage: 15 MG, Q4H
     Route: 048
  7. FAMOTIDINE [Suspect]
     Active Substance: FAMOTIDINE
     Indication: Product used for unknown indication
     Dosage: 20 MG, BID
     Route: 048
  8. CEFTRIAXONE [Concomitant]
     Active Substance: CEFTRIAXONE\CEFTRIAXONE SODIUM
     Indication: Infection
     Dosage: 1 G, Q12H
     Route: 042
  9. KEYTRUDA [Concomitant]
     Active Substance: PEMBROLIZUMAB
     Indication: Product used for unknown indication
     Route: 065
  10. PACLITAXEL [Concomitant]
     Active Substance: PACLITAXEL
     Indication: Non-small cell lung cancer stage IV
     Dosage: 87.5 MG/M2
     Route: 042
  11. PACLITAXEL [Concomitant]
     Active Substance: PACLITAXEL
     Indication: Metastasis
  12. PEMBROLIZUMAB [Concomitant]
     Active Substance: PEMBROLIZUMAB
     Indication: Non-small cell lung cancer stage IV
     Dosage: 2 MG/KG
     Route: 042
  13. PEMBROLIZUMAB [Concomitant]
     Active Substance: PEMBROLIZUMAB
     Dosage: 3.65 MG/KG
     Route: 065
  14. PEMBROLIZUMAB [Concomitant]
     Active Substance: PEMBROLIZUMAB
     Indication: Metastasis
     Dosage: UNK
     Route: 065
  15. RIVAROXABAN [Concomitant]
     Active Substance: RIVAROXABAN
     Indication: Product used for unknown indication
     Route: 065
  16. ALBUTEROL [Concomitant]
     Active Substance: ALBUTEROL
     Indication: Asthma
     Dosage: UNK, Q4H
     Route: 055

REACTIONS (9)
  - Erythema [Recovered/Resolved]
  - Skin abrasion [Recovered/Resolved]
  - Skin laceration [Recovered/Resolved]
  - Skin plaque [Recovered/Resolved]
  - Dyspnoea [Recovered/Resolved]
  - Fatigue [Recovered/Resolved]
  - Rash maculo-papular [Recovered/Resolved]
  - Rash pruritic [Recovered/Resolved]
  - Leukocytosis [Recovered/Resolved]
